FAERS Safety Report 6938773-6 (Version None)
Quarter: 2010Q3

REPORT INFORMATION
  Report Type: 
  Country: None (occurrence: None)
  Receive Date: 20100824
  Receipt Date: 20100817
  Transmission Date: 20110219
  Serious: Yes (Hospitalization)
  Sender: FDA-Public Use
  Company Number: NL-ROCHE-588995

PATIENT
  Weight: 70 kg

DRUGS (17)
  1. CAPECITABINE [Suspect]
     Indication: GASTRIC CANCER
     Route: 065
     Dates: start: 20080819
  2. CAPECITABINE [Suspect]
     Dosage: LAST DOSE PRIOR TO SAE: 23 SEP 2008
     Route: 065
     Dates: start: 20080920
  3. CAPECITABINE [Suspect]
     Dosage: DOSE REDUCED.
     Route: 065
  4. CAPECITABINE [Suspect]
     Route: 065
     Dates: start: 20081015
  5. EPIRUBICIN [Suspect]
     Indication: GASTRIC CANCER
     Route: 065
     Dates: start: 20080819
  6. EPIRUBICIN [Suspect]
     Dosage: DOSAGE REGIMEN NOT REPORTED.
     Route: 065
     Dates: start: 20080820
  7. EPIRUBICIN [Suspect]
     Dosage: DOSE REDUCED
     Route: 065
  8. EPIRUBICIN [Suspect]
     Route: 065
     Dates: start: 20081015
  9. CISPLATIN [Suspect]
     Indication: GASTRIC CANCER
     Route: 065
     Dates: start: 20080819
  10. CISPLATIN [Suspect]
     Dosage: DOSAGE REGIMEN NOT REPORTED.
     Route: 065
     Dates: start: 20080828
  11. CISPLATIN [Suspect]
     Dosage: DOSE REDUCED
     Route: 065
  12. CISPLATIN [Suspect]
     Route: 065
     Dates: start: 20081015
  13. METOCLOPRAMIDE [Concomitant]
  14. ESOMEPRAZOLE MAGNESIUM [Concomitant]
  15. LOPERAMIDE [Concomitant]
     Dosage: PER NEED
     Route: 048
  16. NEXIUM [Concomitant]
     Dosage: PER NEED
     Route: 048
  17. MOVICOLON [Concomitant]
     Dosage: PER NEED
     Route: 048

REACTIONS (4)
  - ASTHENIA [None]
  - DIARRHOEA [None]
  - HYPOKALAEMIA [None]
  - HYPONATRAEMIA [None]
